FAERS Safety Report 23596041 (Version 1)
Quarter: 2024Q1

REPORT INFORMATION
  Report Type: Spontaneous
  Country: US (occurrence: US)
  Receive Date: 20240305
  Receipt Date: 20240305
  Transmission Date: 20240410
  Serious: No
  Sender: FDA-Public Use
  Company Number: US-GLENMARK PHARMACEUTICALS-2023GMK084980

PATIENT

DRUGS (1)
  1. PIRNUO [Suspect]
     Active Substance: MUPIROCIN CALCIUM
     Indication: Rhinitis
     Dosage: UNK, INSIDE THE NOSE
     Route: 061

REACTIONS (1)
  - Product prescribing issue [Unknown]
